FAERS Safety Report 4617588-8 (Version None)
Quarter: 2005Q1

REPORT INFORMATION
  Report Type: 
  Country: None (occurrence: None)
  Receive Date: 20050324
  Receipt Date: 20050318
  Transmission Date: 20050727
  Serious: Yes (Other)
  Sender: FDA-Public Use
  Company Number: PHNR2005AU00663

PATIENT
  Sex: Female

DRUGS (2)
  1. OXIS [Concomitant]
  2. FORADILE [Suspect]
     Dosage: 1-2 CAPSULES, BD

REACTIONS (2)
  - COELIAC DISEASE [None]
  - NAUSEA [None]
